FAERS Safety Report 9283361 (Version 2)
Quarter: 2013Q4

REPORT INFORMATION
  Report Type: Spontaneous
  Country: GB (occurrence: None)
  Receive Date: 20130503
  Receipt Date: 20131029
  Transmission Date: 20140711
  Serious: Yes (Hospitalization, Other)
  Sender: FDA-Public Use
  Company Number: ENTC2013-0162

PATIENT
  Age: 80 Year
  Sex: Male
  Weight: 60 kg

DRUGS (9)
  1. STALEVO (LEVODOPA, CARBIDOPA, ENTACAPONE) [Suspect]
     Indication: PARKINSON^S DISEASE
     Dosage: 5
     Dates: start: 2012
  2. CALCICHEW 3 [Concomitant]
  3. FERROUS FUMARATE [Concomitant]
  4. FOLIC ACID [Concomitant]
  5. HYPROMELLOSE [Concomitant]
  6. MOXONIDINE [Concomitant]
  7. PARACETAMOL [Concomitant]
  8. SINEMET CR [Concomitant]
  9. WARFARIN [Concomitant]

REACTIONS (10)
  - Somnolence [None]
  - Hallucination [None]
  - Urinary retention [None]
  - Diarrhoea [None]
  - Liver function test abnormal [None]
  - Dehydration [None]
  - Blood alkaline phosphatase increased [None]
  - Aspartate aminotransferase increased [None]
  - Gamma-glutamyltransferase increased [None]
  - Blood bilirubin increased [None]
